FAERS Safety Report 6448045-4 (Version None)
Quarter: 2009Q4

REPORT INFORMATION
  Report Type: 
  Country: None (occurrence: None)
  Receive Date: 20091120
  Receipt Date: 20091119
  Transmission Date: 20100525
  Serious: Yes (Death, Hospitalization)
  Sender: FDA-Public Use
  Company Number: US-ASTRAZENECA-2007UW09664

PATIENT
  Age: 38 Year
  Sex: Male
  Weight: 99.8 kg

DRUGS (42)
  1. SEROQUEL [Suspect]
     Indication: BIPOLAR DISORDER
     Route: 048
     Dates: start: 20000101, end: 20070101
  2. SEROQUEL [Suspect]
     Indication: DEPRESSION
     Route: 048
     Dates: start: 20000101, end: 20070101
  3. SEROQUEL [Suspect]
     Indication: SCHIZOPHRENIA
     Route: 048
     Dates: start: 20000101, end: 20070101
  4. SEROQUEL [Suspect]
     Indication: INSOMNIA
     Route: 048
     Dates: start: 20000101, end: 20070101
  5. SEROQUEL [Suspect]
     Route: 048
     Dates: start: 20011212
  6. SEROQUEL [Suspect]
     Route: 048
     Dates: start: 20011212
  7. SEROQUEL [Suspect]
     Route: 048
     Dates: start: 20011212
  8. SEROQUEL [Suspect]
     Route: 048
     Dates: start: 20011212
  9. ALBUTEROL [Concomitant]
  10. LANTUS [Concomitant]
     Dosage: 25-40 UNITS
     Route: 058
  11. LAMICTAL [Concomitant]
     Dosage: 25-100 MG
     Route: 048
  12. PAXIL [Concomitant]
  13. HALDOL [Concomitant]
  14. IPRATROPIUM BROMIDE [Concomitant]
  15. TRAZODONE HCL [Concomitant]
  16. LEXAPRO [Concomitant]
  17. GLUCOPHAGE [Concomitant]
     Dates: start: 20060101
  18. VISTARIL [Concomitant]
  19. RESTRIL [Concomitant]
  20. COREG [Concomitant]
  21. ARTHROTEC [Concomitant]
     Indication: ARTHRITIS
  22. DIOVAN [Concomitant]
  23. GEMFIBROZIL [Concomitant]
  24. LEVAGUIN [Concomitant]
  25. TRICOR [Concomitant]
  26. PREVACID [Concomitant]
  27. ATIVAN [Concomitant]
  28. TENORMIN [Concomitant]
  29. ZANTAC [Concomitant]
  30. HUMULIN N [Concomitant]
  31. PRILOSEC [Concomitant]
  32. ASPIRIN [Concomitant]
  33. ZOLOFT [Concomitant]
  34. NEURONTIN [Concomitant]
  35. QUESTRAN [Concomitant]
  36. THIAMINE [Concomitant]
  37. FOLATE [Concomitant]
  38. DICLOFENAC [Concomitant]
  39. COMBIVENT [Concomitant]
  40. LOPRESSOR [Concomitant]
  41. LOVASTATIN [Concomitant]
  42. ZYPREXA [Concomitant]
     Dates: start: 20000101

REACTIONS (6)
  - ALCOHOLIC PANCREATITIS [None]
  - BACK INJURY [None]
  - DEATH [None]
  - PANCREATITIS ACUTE [None]
  - SHOCK [None]
  - TYPE 2 DIABETES MELLITUS [None]
